FAERS Safety Report 5924677-4 (Version None)
Quarter: 2008Q4

REPORT INFORMATION
  Report Type: 
  Country: None (occurrence: None)
  Receive Date: 20081015
  Receipt Date: 20081001
  Transmission Date: 20090506
  Serious: Yes (Hospitalization, Other)
  Sender: FDA-Public Use
  Company Number: 53072

PATIENT
  Age: 71 Year
  Sex: Female

DRUGS (1)
  1. TERBUTALINE SULFATE [Suspect]
     Indication: ASTHMA

REACTIONS (3)
  - DRUG ERUPTION [None]
  - EOSINOPHILIA [None]
  - RASH MACULO-PAPULAR [None]
